FAERS Safety Report 23889777 (Version 1)
Quarter: 2024Q2

REPORT INFORMATION
  Report Type: Spontaneous
  Country: JP (occurrence: JP)
  Receive Date: 20240523
  Receipt Date: 20240523
  Transmission Date: 20240716
  Serious: Yes (Hospitalization, Other)
  Sender: FDA-Public Use
  Company Number: JP-AstraZeneca-CH-00627382A

PATIENT
  Sex: Male

DRUGS (1)
  1. ULTOMIRIS [Suspect]
     Active Substance: RAVULIZUMAB-CWVZ
     Indication: Paroxysmal nocturnal haemoglobinuria
     Dosage: 1100 MILLIGRAM, Q56
     Route: 041
     Dates: start: 20200513

REACTIONS (4)
  - Breakthrough haemolysis [Recovered/Resolved]
  - Anaemia [Unknown]
  - Pyrexia [Unknown]
  - Infection [Unknown]

NARRATIVE: CASE EVENT DATE: 20240415
